FAERS Safety Report 4854186-5 (Version None)
Quarter: 2005Q4

REPORT INFORMATION
  Report Type: 
  Country: None (occurrence: None)
  Receive Date: 20051213
  Receipt Date: 20051130
  Transmission Date: 20060501
  Serious: Yes (Other)
  Sender: FDA-Public Use
  Company Number: 2005163677

PATIENT
  Sex: Female

DRUGS (2)
  1. DETROL LA [Suspect]
     Indication: URINARY INCONTINENCE
     Dosage: 4 MG (4 MG, 1 IN 1 D)
  2. VITAMINS WITH MINERALS (VITAMINS WITH MINERALS) [Concomitant]

REACTIONS (10)
  - DRUG EFFECT DECREASED [None]
  - DRUG INEFFECTIVE [None]
  - DRY EYE [None]
  - DRY THROAT [None]
  - DYSPNOEA [None]
  - FRUSTRATION [None]
  - HYPERTENSION [None]
  - SWOLLEN TONGUE [None]
  - THYROID DISORDER [None]
  - TONGUE DISORDER [None]
